FAERS Safety Report 5049391-1 (Version None)
Quarter: 2006Q3

REPORT INFORMATION
  Report Type: 
  Country: None (occurrence: None)
  Receive Date: 20060706
  Receipt Date: 20060628
  Transmission Date: 20061208
  Serious: Yes (Death)
  Sender: FDA-Public Use
  Company Number: 200610577BNE

PATIENT
  Age: 59 Year
  Sex: Male
  Weight: 88.6 kg

DRUGS (3)
  1. SORAFENIB [Suspect]
     Indication: METASTATIC MALIGNANT MELANOMA
     Dosage: 400 MG, BID, ORAL
     Route: 048
     Dates: start: 20060502, end: 20060504
  2. DACARBAZINE [Suspect]
     Indication: METASTATIC MALIGNANT MELANOMA
     Dosage: 2070 MG, TOTAL DAILY, INTRAVENOUS
     Route: 042
     Dates: start: 20060502
  3. METOCLOPRAMIDE [Concomitant]

REACTIONS (2)
  - HAEMORRHAGIC STROKE [None]
  - LOSS OF CONSCIOUSNESS [None]
